FAERS Safety Report 21843440 (Version 1)
Quarter: 2023Q1

REPORT INFORMATION
  Report Type: Spontaneous
  Country: US (occurrence: None)
  Receive Date: 20230109
  Receipt Date: 20230109
  Transmission Date: 20230417
  Serious: No
  Sender: FDA-Public Use
  Company Number: None

PATIENT
  Age: 32 Year
  Sex: Female

DRUGS (1)
  1. DROPERIDOL [Suspect]
     Active Substance: DROPERIDOL
     Indication: Migraine
     Dates: start: 20230104, end: 20230104

REACTIONS (3)
  - Muscle spasms [None]
  - Pain [None]
  - Formication [None]

NARRATIVE: CASE EVENT DATE: 20230104
